FAERS Safety Report 8782281 (Version 1)
Quarter: 2012Q4

REPORT INFORMATION
  Report Type: 
  Country: US (occurrence: US)
  Receive Date: 20120913
  Receipt Date: 20120913
  Transmission Date: 20130627
  Serious: Yes (Death, Other)
  Sender: FDA-Public Use
  Company Number: US-BAYER-2012-095455

PATIENT
  Age: 62 Year
  Sex: Female

DRUGS (4)
  1. ACETYLSALICYLIC ACID (} 100 MG) [Suspect]
     Dosage: Daily dose 325 mg
  2. LISINOPRIL [Concomitant]
     Dosage: Daily dose 10 mg
  3. FUROSEMIDE [Concomitant]
     Dosage: Daily dose 40 mg
  4. METOPROLOL [Concomitant]
     Dosage: Daily dose 50 mg

REACTIONS (3)
  - Intracardiac thrombus [Not Recovered/Not Resolved]
  - Cardiac failure [Not Recovered/Not Resolved]
  - Multi-organ failure [Fatal]
